FAERS Safety Report 4784560-7 (Version None)
Quarter: 2005Q3

REPORT INFORMATION
  Report Type: 
  Country: None (occurrence: None)
  Receive Date: 20050928
  Receipt Date: 20050909
  Transmission Date: 20060218
  Serious: Yes (Death, Hospitalization, Other)
  Sender: FDA-Public Use
  Company Number: US_0509121458

PATIENT
  Age: 21 Year
  Sex: Male
  Weight: 65 kg

DRUGS (8)
  1. ZYPREXA [Suspect]
     Indication: ANXIETY
     Dosage: 5 MG/1 AT BEDTIME
     Dates: start: 19981014
  2. ATENOLOL [Concomitant]
  3. NEURONTIN [Concomitant]
  4. REMERON [Concomitant]
  5. BUSPAR [Concomitant]
  6. CEPHADROXIL (CEFADROXIL) [Concomitant]
  7. DIAZEPAM [Concomitant]
  8. TIAZAC [Concomitant]

REACTIONS (24)
  - ABDOMINAL DISTENSION [None]
  - ACUTE RESPIRATORY DISTRESS SYNDROME [None]
  - BLOOD CHOLESTEROL INCREASED [None]
  - BLOOD TRIGLYCERIDES INCREASED [None]
  - CHOLELITHIASIS [None]
  - CONDITION AGGRAVATED [None]
  - DIABETES MELLITUS [None]
  - DILATATION VENTRICULAR [None]
  - HEPATIC STEATOSIS [None]
  - HEPATITIS C [None]
  - HEPATOCELLULAR DAMAGE [None]
  - HIGH DENSITY LIPOPROTEIN INCREASED [None]
  - HYPERLIPIDAEMIA [None]
  - HYPERTENSION [None]
  - HYPOVENTILATION [None]
  - INFLUENZA [None]
  - KETOSIS [None]
  - LOCALISED INFECTION [None]
  - PANCREATITIS [None]
  - PLEURAL EFFUSION [None]
  - RESPIRATORY ARREST [None]
  - SPUTUM CULTURE POSITIVE [None]
  - WEIGHT INCREASED [None]
  - WISDOM TEETH REMOVAL [None]
